FAERS Safety Report 16497986 (Version 3)
Quarter: 2020Q1

REPORT INFORMATION
  Report Type: Report from Study
  Country: JP (occurrence: JP)
  Receive Date: 20190628
  Receipt Date: 20200225
  Transmission Date: 20200409
  Serious: Yes (Other)
  Sender: FDA-Public Use
  Company Number: JP-ASTELLAS-2017JP010301

PATIENT
  Age: 74 Year
  Sex: Male

DRUGS (48)
  1. IOMERON [Suspect]
     Active Substance: IOMEPROL
     Dosage: UNK UNK, UNKNOWN FREQ.
     Route: 042
     Dates: start: 20180727, end: 20180727
  2. NAFTOPIDIL [Concomitant]
     Active Substance: NAFTOPIDIL
     Indication: DYSURIA
     Route: 048
  3. CEFCAPENE PIVOXIL HYDROCHLORIDE [Concomitant]
     Active Substance: CEFCAPENE PIVOXIL HYDROCHLORIDE
     Indication: INFECTION PROPHYLAXIS
  4. LOXOPROFEN SODIUM [Concomitant]
     Active Substance: LOXOPROFEN SODIUM
     Indication: CATARACT OPERATION
     Dosage: UNK UNK, UNKNOWN FREQ.
     Route: 048
     Dates: start: 20170607, end: 20170610
  5. IOMERON [Suspect]
     Active Substance: IOMEPROL
     Indication: COMPUTERISED TOMOGRAM
     Dosage: UNK UNK, UNKNOWN FREQ.
     Route: 042
     Dates: start: 20171115, end: 20171115
  6. SITAGLIPTIN PHOSPHATE MONOHYDRATE [Concomitant]
     Active Substance: SITAGLIPTIN PHOSPHATE
     Indication: TYPE 2 DIABETES MELLITUS
     Route: 048
  7. MOXIFLOXACIN HYDROCHLORIDE. [Concomitant]
     Active Substance: MOXIFLOXACIN HYDROCHLORIDE
     Indication: CATARACT OPERATION
     Dosage: UNK UNK, UNKNOWN FREQ.
     Route: 031
     Dates: start: 20170607, end: 20170904
  8. MOXIFLOXACIN HYDROCHLORIDE. [Concomitant]
     Active Substance: MOXIFLOXACIN HYDROCHLORIDE
     Indication: CATARACT OPERATION
  9. FLUOROMETHOLONE. [Concomitant]
     Active Substance: FLUOROMETHOLONE
     Indication: CATARACT OPERATION
     Dosage: UNK UNK, UNKNOWN FREQ.
     Route: 031
     Dates: start: 20170607, end: 20170621
  10. FLUOROMETHOLONE. [Concomitant]
     Active Substance: FLUOROMETHOLONE
     Indication: CATARACT OPERATION
  11. NEPAFENAC [Concomitant]
     Active Substance: NEPAFENAC
     Indication: CATARACT OPERATION
  12. MAGNESIUM OXIDE. [Concomitant]
     Active Substance: MAGNESIUM OXIDE
     Indication: CONSTIPATION
     Dosage: UNK UNK, UNKNOWN FREQ.
     Route: 048
     Dates: start: 20171115, end: 20180112
  13. CEFCAPENE PIVOXIL HYDROCHLORIDE [Concomitant]
     Active Substance: CEFCAPENE PIVOXIL HYDROCHLORIDE
     Indication: CATARACT OPERATION
     Dosage: UNK UNK, UNKNOWN FREQ.
     Route: 048
     Dates: start: 20170614, end: 20170617
  14. CALCIUM L-ASPARTATE [Concomitant]
     Indication: PROPHYLAXIS
     Route: 048
     Dates: start: 20170630
  15. IOMERON [Suspect]
     Active Substance: IOMEPROL
     Dosage: UNK UNK, UNKNOWN FREQ.
     Route: 042
     Dates: start: 20181019, end: 20181019
  16. OLMESARTAN MEDOXOMIL. [Concomitant]
     Active Substance: OLMESARTAN MEDOXOMIL
     Indication: HYPERTENSION
     Route: 048
  17. METFORMIN HYDROCHLORIDE. [Concomitant]
     Active Substance: METFORMIN HYDROCHLORIDE
     Route: 048
     Dates: start: 20190109, end: 20191015
  18. METFORMIN HYDROCHLORIDE. [Concomitant]
     Active Substance: METFORMIN HYDROCHLORIDE
     Route: 048
     Dates: start: 20190108, end: 20191015
  19. MECOBALAMIN [Concomitant]
     Active Substance: METHYLCOBALAMIN
     Indication: SPINAL STENOSIS
     Route: 048
  20. WYSTAL [Concomitant]
     Active Substance: CEFOPERAZONE SODIUM\SULBACTAM SODIUM
     Indication: CATARACT OPERATION
     Dosage: UNK UNK, UNKNOWN FREQ.
     Route: 041
     Dates: start: 20170607, end: 20170607
  21. DEXAMETHASONE SODIUM PHOSPHATE. [Concomitant]
     Active Substance: DEXAMETHASONE SODIUM PHOSPHATE
     Indication: CATARACT OPERATION
     Dosage: UNK UNK, UNKNOWN FREQ.
     Route: 061
     Dates: start: 20170607, end: 20170607
  22. XYLOCAINE WITH EPINEPHRINE [Concomitant]
     Active Substance: EPINEPHRINE BITARTRATE\LIDOCAINE HYDROCHLORIDE
     Indication: CATARACT OPERATION
     Dosage: UNK UNK, UNKNOWN FREQ.
     Route: 061
     Dates: start: 20170607, end: 20170607
  23. CEFCAPENE PIVOXIL HYDROCHLORIDE [Concomitant]
     Active Substance: CEFCAPENE PIVOXIL HYDROCHLORIDE
     Indication: CATARACT OPERATION
     Dosage: UNK UNK, UNKNOWN FREQ.
     Route: 048
     Dates: start: 20170607, end: 20170610
  24. CLEAR BONE [Concomitant]
     Dosage: UNK UNK, UNKNOWN FREQ.
     Route: 042
     Dates: start: 20190329, end: 20190329
  25. ROSUVASTATIN CALCIUM. [Concomitant]
     Active Substance: ROSUVASTATIN CALCIUM
     Indication: DYSLIPIDAEMIA
     Route: 048
  26. URSODEOXYCHOLIC ACID [Concomitant]
     Active Substance: URSODIOL
     Indication: HEPATIC FUNCTION ABNORMAL
     Route: 048
     Dates: start: 20170113, end: 20170407
  27. GLIMEPIRIDE. [Concomitant]
     Active Substance: GLIMEPIRIDE
     Indication: DIABETES MELLITUS
     Dosage: 0.5 MG, ONCE DAILY
     Route: 048
     Dates: start: 20170526
  28. DEXAMETHASONE SODIUM PHOSPHATE. [Concomitant]
     Active Substance: DEXAMETHASONE SODIUM PHOSPHATE
     Indication: CATARACT OPERATION
     Dosage: UNK UNK, UNKNOWN FREQ.
     Route: 061
     Dates: start: 20170614, end: 20170614
  29. CLEAR BONE [Concomitant]
     Indication: BONE SCAN
     Dosage: UNK UNK, UNKNOWN FREQ.
     Route: 042
     Dates: start: 20171110, end: 20171110
  30. CLEAR BONE [Concomitant]
     Dosage: UNK UNK, UNKNOWN FREQ.
     Route: 042
     Dates: start: 20180427, end: 20180427
  31. CLEAR BONE [Concomitant]
     Dosage: UNK UNK, UNKNOWN FREQ.
     Route: 042
     Dates: start: 20180720, end: 20180720
  32. CLEAR BONE [Concomitant]
     Dosage: UNK UNK, UNKNOWN FREQ.
     Route: 042
     Dates: start: 20181012, end: 20181012
  33. WYSTAL [Concomitant]
     Active Substance: CEFOPERAZONE SODIUM\SULBACTAM SODIUM
     Indication: CATARACT OPERATION
     Dosage: UNK UNK, UNKNOWN FREQ.
     Route: 041
     Dates: start: 20170614, end: 20170614
  34. XYLOCAINE WITH EPINEPHRINE [Concomitant]
     Active Substance: EPINEPHRINE BITARTRATE\LIDOCAINE HYDROCHLORIDE
     Indication: CATARACT OPERATION
     Dosage: UNK UNK, UNKNOWN FREQ.
     Route: 061
     Dates: start: 20170614, end: 20170614
  35. ALFACALCIDOL [Concomitant]
     Active Substance: ALFACALCIDOL
     Indication: PRODUCT USED FOR UNKNOWN INDICATION
     Route: 048
     Dates: start: 20170701
  36. ENZALUTAMIDE [Suspect]
     Active Substance: ENZALUTAMIDE
     Indication: HORMONE-REFRACTORY PROSTATE CANCER
     Route: 048
     Dates: start: 20170413, end: 20200207
  37. FLUTAMIDE. [Suspect]
     Active Substance: FLUTAMIDE
     Indication: HORMONE-REFRACTORY PROSTATE CANCER
     Route: 048
     Dates: start: 20161217, end: 20170412
  38. IOMERON [Suspect]
     Active Substance: IOMEPROL
     Dosage: UNK UNK, UNKNOWN FREQ.
     Route: 042
     Dates: start: 20180209, end: 20180209
  39. ZOLADEX LA [Concomitant]
     Active Substance: GOSERELIN ACETATE
     Indication: HORMONE-REFRACTORY PROSTATE CANCER
     Dosage: 10.8 MG, ONCE IN 3 MONTHS
     Route: 058
  40. DENOSUMAB [Concomitant]
     Active Substance: DENOSUMAB
     Indication: METASTASES TO BONE
     Dosage: 120 MG, EVERY 3 MONTHS
     Route: 058
     Dates: start: 20170630
  41. ORONINE                            /00088302/ [Concomitant]
     Indication: ARTHROPOD STING
     Dosage: UNK UNK, UNKNOWN FREQ.
     Route: 061
     Dates: start: 20180810, end: 20181019
  42. METFORMIN HYDROCHLORIDE. [Concomitant]
     Active Substance: METFORMIN HYDROCHLORIDE
     Indication: TYPE 2 DIABETES MELLITUS
     Route: 048
     Dates: end: 20190108
  43. OPALMON [Concomitant]
     Active Substance: LIMAPROST
     Indication: SPINAL STENOSIS
     Route: 048
  44. NEPAFENAC [Concomitant]
     Active Substance: NEPAFENAC
     Indication: CATARACT OPERATION
     Dosage: UNK UNK, UNKNOWN FREQ.
     Route: 031
     Dates: start: 20170607, end: 20170904
  45. LOXOPROFEN SODIUM [Concomitant]
     Active Substance: LOXOPROFEN SODIUM
     Indication: CATARACT OPERATION
     Dosage: UNK UNK, UNKNOWN FREQ.
     Route: 048
     Dates: start: 20170614, end: 20170617
  46. CLEAR BONE [Concomitant]
     Dosage: UNK UNK, UNKNOWN FREQ.
     Route: 042
     Dates: start: 20180126, end: 20180126
  47. MAGNESIUM OXIDE. [Concomitant]
     Active Substance: MAGNESIUM OXIDE
     Indication: CONSTIPATION PROPHYLAXIS
     Dosage: UNK UNK, UNKNOWN FREQ.
     Route: 048
     Dates: start: 20180113
  48. DERMOVATE [Concomitant]
     Active Substance: CLOBETASOL
     Indication: ARTHROPOD STING
     Dosage: UNK UNK, UNKNOWN FREQ.
     Route: 061
     Dates: start: 20180925, end: 20181011

REACTIONS (10)
  - Cataract operation [Recovered/Resolved]
  - Dental caries [Recovered/Resolved]
  - Constipation [Recovered/Resolved]
  - Cataract operation [Recovered/Resolved]
  - Seborrhoeic keratosis [Recovered/Resolved]
  - Decreased appetite [Recovered/Resolved]
  - Contrast media allergy [Recovered/Resolved]
  - Fatigue [Recovered/Resolved]
  - Arthropod sting [Recovered/Resolved]
  - Diabetes mellitus [Recovered/Resolved]

NARRATIVE: CASE EVENT DATE: 20170512
